FAERS Safety Report 22540131 (Version 1)
Quarter: 2023Q2

REPORT INFORMATION
  Report Type: Spontaneous
  Country: US (occurrence: US)
  Receive Date: 20230609
  Receipt Date: 20230609
  Transmission Date: 20230721
  Serious: Yes (Life-Threatening, Hospitalization, Other)
  Sender: FDA-Public Use
  Company Number: US-Accord-360114

PATIENT
  Age: 76 Year
  Sex: Male

DRUGS (2)
  1. APIXABAN [Suspect]
     Active Substance: APIXABAN
     Indication: Atrial fibrillation
     Dosage: 5 MG TWICE A DAY
  2. ASPIRIN [Suspect]
     Active Substance: ASPIRIN
     Indication: Atrial fibrillation

REACTIONS (4)
  - Post procedural haemorrhage [Recovered/Resolved]
  - Shock haemorrhagic [Recovered/Resolved]
  - Acute myocardial infarction [Recovered/Resolved]
  - Haematochezia [Recovered/Resolved]
